FAERS Safety Report 4665792-5 (Version None)
Quarter: 2005Q2

REPORT INFORMATION
  Report Type: 
  Country: None (occurrence: None)
  Receive Date: 20050519
  Receipt Date: 20050124
  Transmission Date: 20051028
  Serious: No
  Sender: FDA-Public Use
  Company Number: US-GLAXOSMITHKLINE-A0541954A

PATIENT
  Sex: Male

DRUGS (2)
  1. THORAZINE [Suspect]
     Indication: ILL-DEFINED DISORDER
     Dosage: 25MG FOUR TIMES PER DAY
     Route: 048
  2. BACLOFEN [Concomitant]

REACTIONS (1)
  - LETHARGY [None]
